FAERS Safety Report 9580894 (Version 2)
Quarter: 2013Q4

REPORT INFORMATION
  Report Type: Spontaneous
  Country: JP (occurrence: JP)
  Receive Date: 20131002
  Receipt Date: 20131024
  Transmission Date: 20140711
  Serious: Yes (Other)
  Sender: FDA-Public Use
  Company Number: JP-PFIZER INC-2013281201

PATIENT
  Age: 8 Decade
  Sex: Male

DRUGS (1)
  1. JZOLOFT [Suspect]
     Dosage: UNK
     Route: 048

REACTIONS (1)
  - Gait disturbance [Unknown]
